FAERS Safety Report 22886944 (Version 6)
Quarter: 2024Q3

REPORT INFORMATION
  Report Type: Report from Study
  Country: BR (occurrence: BR)
  Receive Date: 20230831
  Receipt Date: 20240925
  Transmission Date: 20241017
  Serious: Yes (Other)
  Sender: NOVARTIS
  Company Number: BR-002147023-NVSC2023BR185029

PATIENT
  Age: 46 Year
  Sex: Female
  Weight: 80 kg

DRUGS (3)
  1. COSENTYX [Suspect]
     Active Substance: SECUKINUMAB
     Indication: Psoriatic arthropathy
     Dosage: 2 DOSAGE FORM, QW
     Route: 058
     Dates: start: 20230816
  2. COSENTYX [Suspect]
     Active Substance: SECUKINUMAB
     Indication: Psoriasis
     Dosage: UNK
     Route: 050
  3. COSENTYX [Suspect]
     Active Substance: SECUKINUMAB
     Dosage: UNK
     Route: 050
     Dates: start: 20230908

REACTIONS (24)
  - Pneumonia [Recovered/Resolved]
  - Opportunistic infection [Unknown]
  - Arthritis [Unknown]
  - Cough [Not Recovered/Not Resolved]
  - Headache [Not Recovered/Not Resolved]
  - Skin haemorrhage [Unknown]
  - Inflammation [Unknown]
  - Night sweats [Unknown]
  - Throat clearing [Not Recovered/Not Resolved]
  - Pain [Not Recovered/Not Resolved]
  - Fatigue [Recovering/Resolving]
  - Alopecia [Not Recovered/Not Resolved]
  - Generalised oedema [Unknown]
  - Agnosia [Unknown]
  - Gastrointestinal infection [Recovered/Resolved]
  - Influenza [Recovering/Resolving]
  - Psoriasis [Unknown]
  - Wound [Unknown]
  - Joint stiffness [Unknown]
  - Skin lesion [Unknown]
  - Fibromyalgia [Not Recovered/Not Resolved]
  - Peripheral swelling [Unknown]
  - Quality of life decreased [Unknown]
  - Drug ineffective [Unknown]

NARRATIVE: CASE EVENT DATE: 20230816
